FAERS Safety Report 8314928-3 (Version None)
Quarter: 2012Q2

REPORT INFORMATION
  Report Type: 
  Country: None (occurrence: None)
  Receive Date: 20120426
  Receipt Date: 20120416
  Transmission Date: 20120825
  Serious: Yes (Hospitalization)
  Sender: FDA-Public Use
  Company Number: US-JNJFOC-20120408376

PATIENT
  Sex: Male

DRUGS (8)
  1. INFLIXIMAB, RECOMBINANT [Suspect]
     Indication: INFLAMMATORY BOWEL DISEASE
     Route: 042
     Dates: start: 20070324, end: 20071015
  2. ANTIBIOTICS [Concomitant]
  3. IMODIUM [Concomitant]
  4. LOMOTIL [Concomitant]
  5. OMEPRAZOLE [Concomitant]
  6. PROAIR HFA [Concomitant]
  7. ZOFRAN [Concomitant]
  8. LEXAPRO [Concomitant]

REACTIONS (1)
  - CONVERSION DISORDER [None]
